FAERS Safety Report 8620322-8 (Version None)
Quarter: 2012Q3

REPORT INFORMATION
  Report Type: 
  Country: None (occurrence: None)
  Receive Date: 20120824
  Receipt Date: 20120823
  Transmission Date: 20120928
  Serious: Yes (Other)
  Sender: FDA-Public Use
  Company Number: BE-BAYER-2012-087619

PATIENT
  Sex: Female

DRUGS (4)
  1. BISOPROLOL FUMARATE [Concomitant]
     Indication: HYPERTENSION
     Dosage: 5 MG, QD
  2. ESCITALOPRAM OXALATE [Concomitant]
     Dosage: 20 MG, QD
  3. CIPROFLOXACIN [Suspect]
     Indication: URINARY TRACT INFECTION
     Dosage: 250 MG, BID
     Route: 048
     Dates: start: 20120820
  4. CYMBALTA [Concomitant]
     Dosage: 60 MG, QD

REACTIONS (1)
  - CYTOLYTIC HEPATITIS [None]
